FAERS Safety Report 23550003 (Version 1)
Quarter: 2024Q1

REPORT INFORMATION
  Report Type: Spontaneous
  Country: US (occurrence: None)
  Receive Date: 20240220
  Receipt Date: 20240220
  Transmission Date: 20240409
  Serious: Yes (Disabling)
  Sender: FDA-Public Use
  Company Number: None

PATIENT
  Sex: 0

DRUGS (1)
  1. TESTOSTERONE [Suspect]
     Active Substance: TESTOSTERONE
     Dosage: OTHER QUANTITY : 1 INJECTION(S);?OTHER FREQUENCY : 2 TIMES PER WEEK;?
     Route: 030
     Dates: start: 20231001, end: 20240201

REACTIONS (3)
  - Product contamination physical [None]
  - Infection [None]
  - Cellulitis [None]

NARRATIVE: CASE EVENT DATE: 20240131
